FAERS Safety Report 9790678 (Version 2)
Quarter: 2014Q1

REPORT INFORMATION
  Report Type: Spontaneous
  Country: US (occurrence: US)
  Receive Date: 20131231
  Receipt Date: 20140225
  Transmission Date: 20141002
  Serious: Yes (Other)
  Sender: FDA-Public Use
  Company Number: US-BRISTOL-MYERS SQUIBB COMPANY-19926575

PATIENT
  Age: 65 Year
  Sex: Female
  Weight: 68.03 kg

DRUGS (6)
  1. ELIQUIS [Suspect]
     Route: 048
     Dates: start: 20131121, end: 20131204
  2. WARFARIN SODIUM [Suspect]
  3. MULTAQ [Concomitant]
     Indication: ATRIAL FIBRILLATION
  4. DIAZEPAM [Concomitant]
  5. ZOLOFT [Concomitant]
     Indication: DEPRESSION
  6. DILTIAZEM ER [Concomitant]
     Dosage: 1DF:24ER-130MG CAPS

REACTIONS (4)
  - Oral mucosal blistering [Recovered/Resolved]
  - Tongue blistering [Recovered/Resolved]
  - Musculoskeletal pain [Recovered/Resolved]
  - Arthralgia [Recovered/Resolved]
